FAERS Safety Report 5071235-2 (Version None)
Quarter: 2006Q3

REPORT INFORMATION
  Report Type: 
  Country: None (occurrence: None)
  Receive Date: 20060714
  Receipt Date: 20060426
  Transmission Date: 20061208
  Serious: No
  Sender: FDA-Public Use
  Company Number: 2006SP001849

PATIENT
  Age: 76 Year
  Sex: Male
  Weight: 78.9259 kg

DRUGS (16)
  1. LUNESTA [Suspect]
     Indication: INSOMNIA
     Dosage: 3 MG; HS; ORAL
     Route: 048
     Dates: start: 20060329
  2. ADVAIR DISKUS 100/50 [Concomitant]
  3. AGGRENOX [Concomitant]
  4. ALBUTEROL [Concomitant]
  5. AZATHIOPRINE [Concomitant]
  6. ALBUTEROL W/IPRATROPIUM [Concomitant]
  7. TAMSULOSIN HCL [Concomitant]
  8. FLONASE [Concomitant]
  9. FOLIC ACID [Concomitant]
  10. MUCINEX [Concomitant]
  11. MULTIVITAMIN [Concomitant]
  12. PREVACID [Concomitant]
  13. ATORVASTATIN CALCIUM [Concomitant]
  14. TYLENOL [Concomitant]
  15. IBUPROFEN [Concomitant]
  16. AMBIEN [Concomitant]

REACTIONS (1)
  - INITIAL INSOMNIA [None]
